FAERS Safety Report 8795507 (Version 1)
Quarter: 2012Q4

REPORT INFORMATION
  Report Type: 
  Country: US (occurrence: US)
  Receive Date: 20120918
  Receipt Date: 20120918
  Transmission Date: 20130627
  Serious: No
  Sender: FDA-Public Use
  Company Number: US-009507513-1208USA005906

PATIENT

DRUGS (1)
  1. PROVENTIL [Suspect]
     Dosage: 1-2 puffs every 4 to 6 hours, prn
     Dates: start: 20110408

REACTIONS (1)
  - Dyspnoea [Unknown]
